FAERS Safety Report 16897852 (Version 2)
Quarter: 2019Q4

REPORT INFORMATION
  Report Type: Spontaneous
  Country: GB (occurrence: GB)
  Receive Date: 20191009
  Receipt Date: 20191219
  Transmission Date: 20200122
  Serious: Yes (Other)
  Sender: FDA-Public Use
  Company Number: GB-TEVA-2019-GB-1118266

PATIENT
  Age: 8 Year
  Sex: Female
  Weight: 23 kg

DRUGS (4)
  1. NUROFEN [Concomitant]
     Active Substance: IBUPROFEN
  2. CALPOL [Concomitant]
     Active Substance: ACETAMINOPHEN
  3. PIRITON [Concomitant]
     Active Substance: CHLORPHENIRAMINE MALEATE
  4. CETIRIZINE [Suspect]
     Active Substance: CETIRIZINE HYDROCHLORIDE
     Indication: HYPERSENSITIVITY
     Dosage: 10 ML PER DAY
     Route: 048
     Dates: start: 20190916, end: 20190917

REACTIONS (2)
  - Nausea [Recovered/Resolved]
  - Retching [Recovered/Resolved]

NARRATIVE: CASE EVENT DATE: 20190917
